FAERS Safety Report 13922794 (Version 5)
Quarter: 2018Q1

REPORT INFORMATION
  Report Type: Spontaneous
  Country: JP (occurrence: JP)
  Receive Date: 20170830
  Receipt Date: 20180321
  Transmission Date: 20180508
  Serious: Yes (Hospitalization, Other)
  Sender: FDA-Public Use
  Company Number: JP-AMGEN-JPNSP2017132119

PATIENT
  Age: 8 Decade
  Sex: Male
  Weight: 60 kg

DRUGS (15)
  1. DECADRON [Concomitant]
     Active Substance: DEXAMETHASONE
     Indication: CHEMOTHERAPY
     Dosage: 6.6 MG, UNK
     Route: 041
     Dates: start: 20170726
  2. DOCETAXEL. [Concomitant]
     Active Substance: DOCETAXEL
     Indication: CHEMOTHERAPY
     Dosage: 127.2 MG, UNK
     Route: 041
     Dates: start: 20170726
  3. ENDOXAN                            /00021101/ [Concomitant]
     Active Substance: CYCLOPHOSPHAMIDE
     Indication: CHEMOTHERAPY
     Dosage: 1017.6 MG, UNK
     Route: 041
     Dates: start: 20170726
  4. ENDOXAN                            /00021101/ [Concomitant]
     Active Substance: CYCLOPHOSPHAMIDE
     Dosage: 1017.6 MG, UNK
     Route: 041
     Dates: end: 20171129
  5. AZOSEMIDE [Concomitant]
     Active Substance: AZOSEMIDE
     Dosage: 20 MG, QD
     Route: 048
  6. DECADRON [Concomitant]
     Active Substance: DEXAMETHASONE
     Dosage: 6.6 MG, UNK
     Route: 041
     Dates: end: 20171129
  7. ALOXI [Concomitant]
     Active Substance: PALONOSETRON HYDROCHLORIDE
     Indication: CHEMOTHERAPY
     Dosage: 0.75 MG, UNK
     Route: 041
     Dates: start: 20170726
  8. LANSOPRAZOLE. [Concomitant]
     Active Substance: LANSOPRAZOLE
     Dosage: 15 MG, QD
     Route: 048
     Dates: start: 20170531
  9. BAYASPIRIN [Concomitant]
     Active Substance: ASPIRIN
     Dosage: 100 MG, QD
     Route: 048
     Dates: start: 20170605
  10. AZOSEMIDE [Concomitant]
     Active Substance: AZOSEMIDE
     Dosage: 15 MG, QD
  11. DOCETAXEL. [Concomitant]
     Active Substance: DOCETAXEL
     Dosage: 127.2 MG, UNK
     Route: 041
     Dates: end: 20171129
  12. FUROSEMIDE. [Concomitant]
     Active Substance: FUROSEMIDE
     Dosage: 20 MG, QD
     Route: 048
  13. G-LASTA [Suspect]
     Active Substance: PEGFILGRASTIM
     Indication: COLONY STIMULATING FACTOR PROPHYLAXIS
     Dosage: 3.6 MG, UNK
     Route: 058
     Dates: start: 20170728, end: 20170728
  14. ALOXI [Concomitant]
     Active Substance: PALONOSETRON HYDROCHLORIDE
     Dosage: 0.75 MG, UNK
     Route: 041
     Dates: end: 20171129
  15. VOGLIBOSE [Concomitant]
     Active Substance: VOGLIBOSE
     Dosage: 0.2 MG, TID
     Route: 048

REACTIONS (7)
  - Myositis [Recovered/Resolved]
  - Blood alkaline phosphatase increased [Recovered/Resolved]
  - Pyrexia [Recovered/Resolved]
  - Arthritis [Recovered/Resolved]
  - C-reactive protein increased [Recovered/Resolved]
  - Dehydration [Recovered/Resolved]
  - Bone pain [Recovered/Resolved]

NARRATIVE: CASE EVENT DATE: 20170809
